FAERS Safety Report 20747705 (Version 4)
Quarter: 2022Q3

REPORT INFORMATION
  Report Type: Spontaneous
  Country: US (occurrence: US)
  Receive Date: 20220425
  Receipt Date: 20220714
  Transmission Date: 20221027
  Serious: No
  Sender: FDA-Public Use
  Company Number: US-SA-SAC20220421000059

PATIENT
  Age: 26 Year
  Sex: Female

DRUGS (23)
  1. DUPIXENT [Suspect]
     Active Substance: DUPILUMAB
     Indication: Asthma
     Dosage: 300 MG, QOW
     Route: 058
     Dates: start: 20220131
  2. DUPIXENT [Suspect]
     Active Substance: DUPILUMAB
     Indication: Asthma
     Dosage: 300 MG, QOW
     Dates: start: 2022
  3. ALBUTEROL [Concomitant]
     Active Substance: ALBUTEROL
  4. BENADRYL [Concomitant]
     Active Substance: DIPHENHYDRAMINE HYDROCHLORIDE
  5. BROVANA [Concomitant]
     Active Substance: ARFORMOTEROL TARTRATE
  6. BUDESONIDE [Concomitant]
     Active Substance: BUDESONIDE
  7. COLESTIPOL [Concomitant]
     Active Substance: COLESTIPOL
  8. DEXILANT [Concomitant]
     Active Substance: DEXLANSOPRAZOLE
  9. FLONASE [Concomitant]
     Active Substance: FLUTICASONE PROPIONATE
  10. MACRODANTIN [Concomitant]
     Active Substance: NITROFURANTOIN
  11. PERCOCET [Concomitant]
     Active Substance: ACETAMINOPHEN\OXYCODONE HYDROCHLORIDE
  12. PHENERGAN [Concomitant]
     Active Substance: PROMETHAZINE HYDROCHLORIDE
  13. PROBIOTICS NOS [Concomitant]
     Active Substance: PROBIOTICS NOS
  14. SINGULAIR [Concomitant]
     Active Substance: MONTELUKAST SODIUM
  15. SPIRIVA [Concomitant]
     Active Substance: TIOTROPIUM BROMIDE MONOHYDRATE
  16. VENTOLIN HFA [Concomitant]
     Active Substance: ALBUTEROL SULFATE
  17. VITAMIN B12 [Concomitant]
     Active Substance: CYANOCOBALAMIN
  18. ZYRTEC [Concomitant]
     Active Substance: CETIRIZINE HYDROCHLORIDE
  19. DIPHENOXYLATE [Concomitant]
     Active Substance: DIPHENOXYLATE
  20. VIT D [VITAMIN D NOS] [Concomitant]
  21. VITAMIN B12 [Concomitant]
     Active Substance: CYANOCOBALAMIN
     Dosage: 1000MCG
  22. VITAMIN D NOS [Concomitant]
     Active Substance: VITAMIN D NOS
     Dosage: 50 MCG
  23. ZYRTEC [Concomitant]
     Active Substance: CETIRIZINE HYDROCHLORIDE
     Dosage: UNK

REACTIONS (3)
  - Injection site pain [Unknown]
  - Injection site erythema [Not Recovered/Not Resolved]
  - Product use issue [Unknown]

NARRATIVE: CASE EVENT DATE: 20220101
